FAERS Safety Report 17299573 (Version 1)
Quarter: 2020Q1

REPORT INFORMATION
  Report Type: Spontaneous
  Country: US (occurrence: US)
  Receive Date: 20200122
  Receipt Date: 20200122
  Transmission Date: 20200409
  Serious: No
  Sender: FDA-Public Use
  Company Number: US-ALLERGAN-1907203US

PATIENT
  Sex: Female

DRUGS (1)
  1. RESTASIS [Suspect]
     Active Substance: CYCLOSPORINE
     Indication: DRY EYE
     Route: 047

REACTIONS (6)
  - Foreign body sensation in eyes [Unknown]
  - Multiple use of single-use product [Unknown]
  - Eye discharge [Unknown]
  - Eye pain [Unknown]
  - Dry eye [Unknown]
  - Eyelid margin crusting [Unknown]
